FAERS Safety Report 5777381-X (Version None)
Quarter: 2008Q2

REPORT INFORMATION
  Report Type: 
  Country: None (occurrence: None)
  Receive Date: 20080601
  Receipt Date: 20080110
  Transmission Date: 20081010
  Serious: No
  Sender: FDA-Public Use
  Company Number: US200801002247

PATIENT
  Age: 46 Year
  Sex: Female
  Weight: 94.8 kg

DRUGS (2)
  1. BYETTA [Suspect]
     Indication: DIABETES MELLITUS
     Dosage: 5 UG, 2/D, SUBCUTANEOUS
     Route: 058
     Dates: start: 20070701
  2. AVAPRO [Concomitant]

REACTIONS (1)
  - BLOOD PRESSURE INCREASED [None]
